FAERS Safety Report 5088010-5 (Version None)
Quarter: 2006Q3

REPORT INFORMATION
  Report Type: 
  Country: None (occurrence: None)
  Receive Date: 20060821
  Receipt Date: 20060810
  Transmission Date: 20061208
  Serious: Yes (Hospitalization)
  Sender: FDA-Public Use
  Company Number: GXKR2006US04676

PATIENT
  Age: 32 Year
  Sex: Female

DRUGS (5)
  1. DOXORUBICIN (NGX) (DOXORUBICIN) UNKNOWN [Suspect]
     Indication: BREAST CANCER
  2. DOCETAXEL (NGX) (DOCETAXEL) [Suspect]
     Indication: BREAST CANCER
  3. DEXAMETHASONE [Suspect]
  4. CYCLOPHOSPHAMIDE [Concomitant]
     Indication: BREAST CANCER
  5. NEULASTA [Suspect]
     Dosage: 6 MG, ON DAY 2, SUBCUTANEOUS
     Route: 058

REACTIONS (1)
  - FEBRILE NEUTROPENIA [None]
